FAERS Safety Report 4268021-X (Version None)
Quarter: 2004Q1

REPORT INFORMATION
  Report Type: 
  Country: None (occurrence: None)
  Receive Date: 20040109
  Receipt Date: 20030815
  Transmission Date: 20041129
  Serious: Yes (Other)
  Sender: FDA-Public Use
  Company Number: US-ROCHE-344983

PATIENT
  Age: 64 Year
  Sex: Male
  Weight: 86.6 kg

DRUGS (5)
  1. PEGASYS [Suspect]
     Indication: HEPATITIS C
     Route: 058
     Dates: start: 20030610, end: 20030818
  2. COPEGUS [Concomitant]
     Indication: HEPATITIS C
     Route: 048
     Dates: start: 20030610, end: 20030818
  3. LOTREL [Concomitant]
     Route: 048
  4. CLARINEX [Concomitant]
     Route: 048
     Dates: start: 20030415, end: 20030615
  5. TRAZODONE HCL [Concomitant]
     Indication: INSOMNIA
     Dosage: ADMINISTERED QHS.
     Route: 048
     Dates: start: 20030711

REACTIONS (2)
  - EXTRASYSTOLES [None]
  - VENTRICULAR EXTRASYSTOLES [None]
